FAERS Safety Report 5971241-7 (Version None)
Quarter: 2008Q4

REPORT INFORMATION
  Report Type: 
  Country: None (occurrence: None)
  Receive Date: 20081128
  Receipt Date: 20081124
  Transmission Date: 20090506
  Serious: Yes (Other)
  Sender: FDA-Public Use
  Company Number: US-PFIZER INC-2008069900

PATIENT
  Sex: Female
  Weight: 40.8 kg

DRUGS (10)
  1. NARDIL [Suspect]
     Indication: DEPRESSION
  2. LITHIUM CARBONATE [Suspect]
  3. ABILIFY [Suspect]
  4. EFFEXOR [Suspect]
  5. PROVIGIL [Suspect]
     Indication: NARCOLEPSY
  6. IBANDRONATE SODIUM [Concomitant]
  7. CENTRUM SILVER [Concomitant]
  8. CALCIUM PLUS [Concomitant]
  9. CARAFATE [Concomitant]
  10. RITALIN [Concomitant]

REACTIONS (3)
  - ENDOMETRIAL ABLATION [None]
  - HYPERTENSIVE CRISIS [None]
  - NARCOLEPSY [None]
